FAERS Safety Report 10645302 (Version 3)
Quarter: 2014Q4

REPORT INFORMATION
  Report Type: Spontaneous
  Country: JP (occurrence: JP)
  Receive Date: 20141211
  Receipt Date: 20141218
  Transmission Date: 20150529
  Serious: Yes (Hospitalization, Other)
  Sender: FDA-Public Use
  Company Number: PHHY2014JP120565

PATIENT
  Age: 46 Year
  Sex: Male
  Weight: 67 kg

DRUGS (4)
  1. CELLCEPT [Suspect]
     Active Substance: MYCOPHENOLATE MOFETIL\MYCOPHENOLATE MOFETIL HYDROCHLORIDE
     Indication: IMMUNOSUPPRESSION
     Dosage: 750 MG, BID
     Route: 048
     Dates: start: 20140303, end: 20140303
  2. CERTICAN [Suspect]
     Active Substance: EVEROLIMUS
     Indication: CHRONIC KIDNEY DISEASE
     Dosage: 0.75 MG, BID
     Route: 048
     Dates: start: 20140303, end: 20140303
  3. CERTICAN [Suspect]
     Active Substance: EVEROLIMUS
     Indication: PERITONEAL DIALYSIS
  4. GRACEPTOR [Suspect]
     Active Substance: TACROLIMUS
     Indication: IMMUNOSUPPRESSION
     Dosage: 6.5 MG, QD (6.5 MG PER TIME)
     Route: 048
     Dates: start: 20140303, end: 20140303

REACTIONS (6)
  - Renal neoplasm [Recovered/Resolved]
  - Arthritis [Recovered/Resolved]
  - Peripheral swelling [Unknown]
  - Erythema [Unknown]
  - Pyrexia [Unknown]
  - Joint swelling [Unknown]

NARRATIVE: CASE EVENT DATE: 20140304
